FAERS Safety Report 4517846-1 (Version None)
Quarter: 2004Q4

REPORT INFORMATION
  Report Type: 
  Country: None (occurrence: None)
  Receive Date: 20041203
  Receipt Date: 20041019
  Transmission Date: 20050328
  Serious: Yes (Hospitalization)
  Sender: FDA-Public Use
  Company Number: GB-MERCK-0410GBR00210

PATIENT
  Age: 79 Year
  Sex: Female

DRUGS (8)
  1. VIOXX [Suspect]
     Indication: POLYMYALGIA RHEUMATICA
     Route: 048
     Dates: start: 20040201, end: 20041001
  2. VIOXX [Suspect]
     Indication: ARTHRITIS
     Route: 048
     Dates: start: 20040201, end: 20041001
  3. CALCIUM CARBONATE AND CHOLECALCIFEROL [Concomitant]
     Indication: OSTEOPOROSIS
     Route: 065
     Dates: start: 19970401
  4. METOPROLOL [Concomitant]
     Indication: HYPERTENSION
     Route: 065
     Dates: start: 19890101
  5. NITRAZEPAM [Concomitant]
     Indication: SLEEP DISORDER
     Route: 065
     Dates: start: 19890101
  6. SULFASALAZINE [Concomitant]
     Indication: ARTHRALGIA
     Route: 065
     Dates: end: 20040818
  7. SULFASALAZINE [Concomitant]
     Route: 065
     Dates: start: 20040801, end: 20040801
  8. DEFLAZACORT [Concomitant]
     Route: 065
     Dates: start: 19980201

REACTIONS (1)
  - CEREBROVASCULAR ACCIDENT [None]
